FAERS Safety Report 6573898-9 (Version None)
Quarter: 2010Q1

REPORT INFORMATION
  Report Type: 
  Country: None (occurrence: None)
  Receive Date: 20100204
  Receipt Date: 20100204
  Transmission Date: 20100710
  Serious: Yes (Hospitalization, Disabling)
  Sender: FDA-Public Use
  Company Number: None

PATIENT
  Age: 60 Year
  Sex: Male
  Weight: 90.7194 kg

DRUGS (1)
  1. AVELOX [Suspect]
     Indication: NECROTISING FASCIITIS
     Dosage: IV BOLUS
     Route: 040
     Dates: start: 20100104, end: 20100108

REACTIONS (3)
  - AVULSION FRACTURE [None]
  - SKIN GRAFT [None]
  - TENDON RUPTURE [None]
